FAERS Safety Report 7519081-1 (Version None)
Quarter: 2011Q2

REPORT INFORMATION
  Report Type: 
  Country: None (occurrence: None)
  Receive Date: 20110602
  Receipt Date: 20110525
  Transmission Date: 20111010
  Serious: Yes (Death)
  Sender: FDA-Public Use
  Company Number: JP-ROCHE-776482

PATIENT
  Sex: Male
  Weight: 81 kg

DRUGS (9)
  1. CARBOPLATIN [Concomitant]
     Route: 041
     Dates: start: 20110316, end: 20110419
  2. POLARAMINE [Concomitant]
     Route: 041
     Dates: start: 20110316, end: 20110419
  3. SELBEX [Concomitant]
     Route: 048
     Dates: start: 20101110, end: 20110501
  4. VOLTAREN [Concomitant]
     Route: 054
     Dates: start: 20110427, end: 20110501
  5. DECADRON [Concomitant]
     Dates: start: 20110316, end: 20110419
  6. FAMOTIDINE [Concomitant]
     Route: 041
     Dates: start: 20110316, end: 20110419
  7. AVASTIN [Suspect]
     Indication: LUNG ADENOCARCINOMA RECURRENT
     Route: 041
     Dates: start: 20110316, end: 20110419
  8. PACLITAXEL [Concomitant]
     Dates: start: 20110316, end: 20110419
  9. LOBU [Concomitant]
     Route: 048
     Dates: start: 20101110, end: 20110501

REACTIONS (2)
  - GASTROINTESTINAL PERFORATION [None]
  - DISEASE PROGRESSION [None]
